FAERS Safety Report 21570669 (Version 2)
Quarter: 2022Q4

REPORT INFORMATION
  Report Type: Spontaneous
  Country: CN (occurrence: None)
  Receive Date: 20221109
  Receipt Date: 20221112
  Transmission Date: 20230113
  Serious: Yes (Hospitalization)
  Sender: FDA-Public Use
  Company Number: CN-ROCHE-3214206

PATIENT
  Age: 61 Year
  Sex: Male
  Weight: 60 kg

DRUGS (13)
  1. RITUXIMAB [Suspect]
     Active Substance: RITUXIMAB
     Indication: Mantle cell lymphoma stage IV
     Dosage: SH0184
     Route: 041
     Dates: start: 20221013
  2. RITUXIMAB [Suspect]
     Active Substance: RITUXIMAB
     Dosage: H1038?POWDER, INJECTION
     Route: 041
     Dates: start: 20221013
  3. SODIUM CHLORIDE [Suspect]
     Active Substance: SODIUM CHLORIDE
     Indication: Mantle cell lymphoma stage IV
     Route: 042
     Dates: start: 20221013
  4. SODIUM CHLORIDE [Suspect]
     Active Substance: SODIUM CHLORIDE
     Route: 041
     Dates: start: 20221017
  5. SODIUM CHLORIDE [Suspect]
     Active Substance: SODIUM CHLORIDE
     Route: 041
     Dates: start: 20221013
  6. DOXORUBICIN [Suspect]
     Active Substance: DOXORUBICIN
     Indication: Mantle cell lymphoma stage IV
     Route: 041
     Dates: start: 20221017
  7. CYCLOPHOSPHAMIDE [Suspect]
     Active Substance: CYCLOPHOSPHAMIDE
     Indication: Mantle cell lymphoma stage IV
     Dosage: 500MG ONCE EVERY 12H D1-D3
     Route: 041
     Dates: start: 20221013
  8. DEXAMETHASONE SODIUM PHOSPHATE [Suspect]
     Active Substance: DEXAMETHASONE SODIUM PHOSPHATE
     Indication: Mantle cell lymphoma stage IV
     Dosage: 20MG D1-4,D11-14
     Route: 042
     Dates: start: 20221013
  9. VINDESINE [Suspect]
     Active Substance: VINDESINE
     Indication: Mantle cell lymphoma stage IV
     Dosage: 4MG D4,D11
     Route: 042
     Dates: start: 20221013
  10. SODIUM CHLORIDE [Concomitant]
     Active Substance: SODIUM CHLORIDE
     Indication: Medication dilution
     Route: 041
     Dates: start: 20221013
  11. SODIUM CHLORIDE [Concomitant]
     Active Substance: SODIUM CHLORIDE
     Dosage: LOT NO. 2208513
     Route: 042
     Dates: start: 20221017
  12. SODIUM CHLORIDE [Concomitant]
     Active Substance: SODIUM CHLORIDE
     Dosage: LOT NO.U22060702
     Route: 041
     Dates: start: 20221014
  13. ORELABRUTINIB [Concomitant]
     Active Substance: ORELABRUTINIB
     Indication: Mantle cell lymphoma stage IV
     Dates: start: 20221013

REACTIONS (2)
  - Myelosuppression [Recovering/Resolving]
  - Off label use [Unknown]

NARRATIVE: CASE EVENT DATE: 20221024
